FAERS Safety Report 6684783-6 (Version None)
Quarter: 2010Q2

REPORT INFORMATION
  Report Type: 
  Country: None (occurrence: None)
  Receive Date: 20100416
  Receipt Date: 20100412
  Transmission Date: 20101027
  Serious: Yes (Other)
  Sender: FDA-Public Use
  Company Number: US-ELI_LILLY_AND_COMPANY-US201004003243

PATIENT
  Age: 82 Year
  Sex: Male

DRUGS (12)
  1. HUMULIN N [Suspect]
     Indication: DIABETES MELLITUS
     Dosage: 25 U, DAILY (1/D)
  2. HUMULIN N [Suspect]
     Dosage: 25 U, 2/D
     Dates: end: 19910101
  3. HUMULIN U [Suspect]
     Indication: DIABETES MELLITUS
     Dates: start: 19910101
  4. ASPIRIN [Concomitant]
  5. HYDROCHLOROTHIAZIDE [Concomitant]
  6. DILTIAZEM HCL [Concomitant]
  7. SIMVASTATIN [Concomitant]
  8. BENADRYL [Concomitant]
     Dosage: 25 MG, EACH EVENING
  9. NOVOLOG [Concomitant]
  10. NOVOLIN [Concomitant]
  11. LANTUS [Concomitant]
  12. INSULIN [Concomitant]
     Dosage: 5 U, DAILY (1/D)
     Dates: end: 20060101

REACTIONS (16)
  - ANGIOPLASTY [None]
  - ARTHRITIS [None]
  - AURICULAR SWELLING [None]
  - BACK PAIN [None]
  - BLOOD GLUCOSE DECREASED [None]
  - DIABETES MELLITUS INADEQUATE CONTROL [None]
  - GLAUCOMA [None]
  - HYPERHIDROSIS [None]
  - HYPOACUSIS [None]
  - MEMORY IMPAIRMENT [None]
  - MUSCLE SPASMS [None]
  - OCULAR VASCULAR DISORDER [None]
  - PAIN IN EXTREMITY [None]
  - PALPITATIONS [None]
  - RHINORRHOEA [None]
  - TINNITUS [None]
